FAERS Safety Report 5912523-4 (Version None)
Quarter: 2008Q4

REPORT INFORMATION
  Report Type: 
  Country: None (occurrence: None)
  Receive Date: 20081006
  Receipt Date: 20080924
  Transmission Date: 20090506
  Serious: Yes (Death)
  Sender: FDA-Public Use
  Company Number: 20303

PATIENT
  Age: 57 Year
  Sex: Female

DRUGS (5)
  1. PACLITAXEL [Suspect]
     Indication: BREAST CANCER
     Dosage: 80 MG/M2 FREQ UNK IV
     Route: 042
     Dates: start: 20080529, end: 20080529
  2. FLUOROURACIL [Concomitant]
  3. CYCLOPHOSPHAMIDE [Concomitant]
  4. DOCETAXEL [Concomitant]
  5. EPIRUBICIN [Concomitant]

REACTIONS (2)
  - CARDIAC ARREST [None]
  - DRUG HYPERSENSITIVITY [None]
